FAERS Safety Report 25827100 (Version 1)
Quarter: 2025Q3

REPORT INFORMATION
  Report Type: Spontaneous
  Country: CN (occurrence: CN)
  Receive Date: 20250920
  Receipt Date: 20250920
  Transmission Date: 20251020
  Serious: Yes (Hospitalization)
  Sender: ALEXION PHARMACEUTICALS
  Company Number: CN-AstraZeneca-CH-00945355A

PATIENT
  Age: 71 Year
  Sex: Male

DRUGS (1)
  1. BUDESONIDE\FORMOTEROL\GLYCOPYRRONIUM [Suspect]
     Active Substance: BUDESONIDE\FORMOTEROL\GLYCOPYRRONIUM
     Indication: Chronic obstructive pulmonary disease

REACTIONS (7)
  - Nasopharyngitis [Recovered/Resolved]
  - Wrong technique in device usage process [Recovered/Resolved]
  - Stomatitis [Recovering/Resolving]
  - Swelling [Unknown]
  - Oropharyngeal pain [Unknown]
  - No adverse event [Unknown]
  - Neutrophil count increased [Unknown]
